FAERS Safety Report 9787596 (Version 1)
Quarter: 2013Q4

REPORT INFORMATION
  Report Type: Spontaneous
  Country: US (occurrence: None)
  Receive Date: 20131226
  Receipt Date: 20131226
  Transmission Date: 20140711
  Serious: Yes (Other)
  Sender: FDA-Public Use
  Company Number: FK201305418

PATIENT
  Age: 56 Year
  Sex: Male

DRUGS (6)
  1. CYANOCOBALAMIN [Suspect]
     Indication: PERNICIOUS ANAEMIA
     Route: 058
     Dates: start: 1997, end: 201312
  2. VITAMIN C (ASCORBIC AICD) [Concomitant]
  3. VITAMIN D (ERGOCALCIFEROL) [Concomitant]
  4. ECHINACEA PURPUREA [Concomitant]
  5. VITAMIN E (TOCOPHEROL) [Concomitant]
  6. MULTIVITAMIN (VIGRAN) (ERGOCALCIFEOL, ASCORBIC ACID, PYRIDOXINE HYDROCHLORIDE, THIAMINE HYDROCHLORIDE, RETINOL, RIBOFLAVIN, NICOTINAMIDE, CALCIUM PANTHOTHENATE) [Concomitant]

REACTIONS (6)
  - Bone pain [None]
  - Feeling abnormal [None]
  - Memory impairment [None]
  - Disturbance in attention [None]
  - Asthenia [None]
  - Balance disorder [None]
